FAERS Safety Report 6760313-5 (Version None)
Quarter: 2010Q2

REPORT INFORMATION
  Report Type: 
  Country: None (occurrence: None)
  Receive Date: 20100528
  Receipt Date: 20081117
  Transmission Date: 20101027
  Serious: No
  Sender: FDA-Public Use
  Company Number: 2008-00129

PATIENT
  Age: 31 Year
  Sex: Male
  Weight: 83.0083 kg

DRUGS (1)
  1. ZICAM COLD REMEDY NASAL GEL [Suspect]
     Indication: NASOPHARYNGITIS
     Dosage: 3 DOSES X 2 DAYS
     Dates: start: 20081109, end: 20081111

REACTIONS (2)
  - ANOSMIA [None]
  - BURNING SENSATION [None]
